FAERS Safety Report 21761128 (Version 2)
Quarter: 2024Q1

REPORT INFORMATION
  Report Type: Spontaneous
  Country: DE (occurrence: DE)
  Receive Date: 20221221
  Receipt Date: 20240320
  Transmission Date: 20240410
  Serious: Yes (Death, Other)
  Sender: FDA-Public Use
  Company Number: DE-PFIZER INC-202201385159

PATIENT
  Age: 60 Year
  Sex: Female

DRUGS (1)
  1. LORLATINIB [Suspect]
     Active Substance: LORLATINIB
     Indication: Non-small cell lung cancer
     Dosage: 50 MG, 1X/DAY

REACTIONS (3)
  - Neoplasm progression [Fatal]
  - COVID-19 pneumonia [Unknown]
  - Off label use [Unknown]
